FAERS Safety Report 4674945-1 (Version None)
Quarter: 2005Q2

REPORT INFORMATION
  Report Type: 
  Country: None (occurrence: None)
  Receive Date: 20050525
  Receipt Date: 20050517
  Transmission Date: 20051028
  Serious: Yes (Disabling, Other)
  Sender: FDA-Public Use
  Company Number: 200510990BWH

PATIENT
  Sex: Female

DRUGS (1)
  1. CIPRO [Suspect]
     Indication: STREPTOCOCCAL INFECTION
     Dosage: ORAL
     Route: 048
     Dates: start: 20040601

REACTIONS (5)
  - ABASIA [None]
  - ARTHRALGIA [None]
  - ARTHROPATHY [None]
  - NEUROPATHY [None]
  - WEIGHT INCREASED [None]
